FAERS Safety Report 11647354 (Version 3)
Quarter: 2015Q4

REPORT INFORMATION
  Report Type: Spontaneous
  Country: IT (occurrence: IT)
  Receive Date: 20151021
  Receipt Date: 20151109
  Transmission Date: 20160304
  Serious: Yes (Hospitalization)
  Sender: FDA-Public Use
  Company Number: IT-SUN PHARMACEUTICAL INDUSTRIES LTD-2015RR-104481

PATIENT

DRUGS (1)
  1. AMOXICILLINA E ACIDO CLAVULANICO RANBAXY ITALIA 875 MG+125 MG FILM COA [Suspect]
     Active Substance: AMOXICILLIN
     Indication: PRODUCT USED FOR UNKNOWN INDICATION
     Dosage: ONLY ONE UNIT IN TOTAL
     Route: 048
     Dates: start: 20150916

REACTIONS (2)
  - Dyspnoea [Recovering/Resolving]
  - Pharyngeal oedema [Recovering/Resolving]

NARRATIVE: CASE EVENT DATE: 20150916
